FAERS Safety Report 11516984 (Version 3)
Quarter: 2016Q1

REPORT INFORMATION
  Report Type: Report from Study
  Country: US (occurrence: US)
  Receive Date: 20150917
  Receipt Date: 20160215
  Transmission Date: 20160525
  Serious: No
  Sender: FDA-Public Use
  Company Number: PHEH2013US005068

PATIENT
  Age: 12 Year
  Sex: Female

DRUGS (3)
  1. AFINITOR [Suspect]
     Active Substance: EVEROLIMUS
     Indication: GANGLIOGLIOMA
     Dosage: 5 MG, DAILY
     Route: 048
     Dates: start: 20121015
  2. DOXYCYCLINE. [Concomitant]
     Active Substance: DOXYCYCLINE
     Indication: PRODUCT USED FOR UNKNOWN INDICATION
     Dosage: UNK
     Route: 065
  3. PROBIOTIC [Concomitant]
     Active Substance: PROBIOTICS NOS
     Indication: PRODUCT USED FOR UNKNOWN INDICATION
     Route: 065

REACTIONS (9)
  - Acne [Recovering/Resolving]
  - Blood cholesterol increased [Unknown]
  - Menstruation irregular [Not Recovered/Not Resolved]
  - Oligomenorrhoea [Unknown]
  - Nasopharyngitis [Not Recovered/Not Resolved]
  - Neoplasm [Unknown]
  - Blood triglycerides increased [Unknown]
  - Dysphonia [Not Recovered/Not Resolved]
  - Upper respiratory tract infection [Recovered/Resolved]

NARRATIVE: CASE EVENT DATE: 20121115
